FAERS Safety Report 4901199-0 (Version None)
Quarter: 2006Q1

REPORT INFORMATION
  Report Type: 
  Country: None (occurrence: None)
  Receive Date: 20060201
  Receipt Date: 20060123
  Transmission Date: 20060701
  Serious: Yes (Other)
  Sender: FDA-Public Use
  Company Number: 200610349BCC

PATIENT
  Age: 49 Year
  Sex: Male
  Weight: 95.2554 kg

DRUGS (2)
  1. ALEVE [Suspect]
     Indication: BACK PAIN
     Dosage: 220 MG, ONCE, ORAL
     Route: 048
     Dates: start: 20060121
  2. PREDNISONE [Concomitant]

REACTIONS (1)
  - DERMATITIS CONTACT [None]
